FAERS Safety Report 7893702-6 (Version None)
Quarter: 2011Q4

REPORT INFORMATION
  Report Type: 
  Country: None (occurrence: None)
  Receive Date: 20111104
  Receipt Date: 20111028
  Transmission Date: 20120403
  Serious: Yes (Hospitalization)
  Sender: FDA-Public Use
  Company Number: US-B.I. PHARMACEUTICALS,INC./RIDGEFIELD-2011-BP-25197BP

PATIENT
  Sex: Female

DRUGS (11)
  1. MEGESTROL ACETATE [Concomitant]
     Indication: APPETITE DISORDER
  2. HEPARIN [Concomitant]
     Indication: ACUTE MYOCARDIAL INFARCTION
  3. SYNTHROID [Concomitant]
     Indication: HYPERTHYROIDISM
  4. PRILOSEC [Concomitant]
     Indication: GASTROOESOPHAGEAL REFLUX DISEASE
  5. DIGOXIN [Concomitant]
     Indication: CARDIAC FAILURE CONGESTIVE
  6. SPIRONOLACTONE [Concomitant]
     Indication: CARDIAC FAILURE CONGESTIVE
  7. COREG [Concomitant]
     Indication: CARDIAC FAILURE CONGESTIVE
  8. PRADAXA [Suspect]
     Indication: ATRIAL FIBRILLATION
     Dosage: 150 MG
     Route: 048
     Dates: start: 20111018, end: 20111028
  9. IMDUR [Concomitant]
     Indication: ANGINA PECTORIS
  10. LASIX [Concomitant]
     Indication: CARDIAC FAILURE CONGESTIVE
  11. TRAMADOL HCL [Concomitant]
     Indication: ARTHRITIS

REACTIONS (1)
  - ACUTE MYOCARDIAL INFARCTION [None]
